FAERS Safety Report 20317750 (Version 6)
Quarter: 2022Q2

REPORT INFORMATION
  Report Type: Spontaneous
  Country: PL (occurrence: PL)
  Receive Date: 20220110
  Receipt Date: 20220412
  Transmission Date: 20220720
  Serious: Yes (Death, Life-Threatening, Hospitalization, Other)
  Sender: FDA-Public Use
  Company Number: PL-MYLANLABS-2022M1001240

PATIENT
  Age: 34 Year
  Sex: Male

DRUGS (14)
  1. OLANZAPINE [Suspect]
     Active Substance: OLANZAPINE
     Indication: Schizophrenia
     Dosage: 20 MILLIGRAM
     Route: 048
  2. OLANZAPINE [Suspect]
     Active Substance: OLANZAPINE
     Dosage: 10 MG, UNKNOWN
     Route: 048
  3. OLANZAPINE [Suspect]
     Active Substance: OLANZAPINE
     Dosage: UNK, ORALLY DISINTEGRATING TABLETS
     Route: 048
  4. OLANZAPINE [Suspect]
     Active Substance: OLANZAPINE
     Dosage: 20 MILLIGRAM, QD (19TH DAY OF HOSPITALISATION)
     Route: 048
  5. OLANZAPINE [Suspect]
     Active Substance: OLANZAPINE
     Dosage: 20 MILLIGRAM, Q2D (DOSE INCREASED TO 20 MG ON TWO CONSECUTIVE DAYS)
     Route: 048
  6. OLANZAPINE [Suspect]
     Active Substance: OLANZAPINE
     Dosage: 10 MILLIGRAM, Q2D
     Route: 048
  7. OLANZAPINE [Suspect]
     Active Substance: OLANZAPINE
     Dosage: FROM10MG/DAY TO 20MG/DAY(INITIALLY10MG/DAY,THEN INCREASED TO20MG/DAY)
     Route: 048
  8. OLANZAPINE [Suspect]
     Active Substance: OLANZAPINE
     Dosage: 10 MG, (ORALLY DISINTEGRATING TABLETS)
     Route: 048
  9. OLANZAPINE [Suspect]
     Active Substance: OLANZAPINE
     Dosage: 20 MILLIGRAM, QD (ORALLY DISINTEGRATING TABLETS)
     Route: 048
  10. OLANZAPINE [Suspect]
     Active Substance: OLANZAPINE
     Dosage: 20 MILLIGRAM (ON 19TH DAY, DECIDED TO RE-INITIATE OLANZAPINE 20 MG/DAY)
     Route: 048
  11. OLANZAPINE [Suspect]
     Active Substance: OLANZAPINE
     Dosage: 20 MILLIGRAM (OLANZAPINE 20 MG ORALLY)
     Route: 048
  12. HALOPERIDOL [Suspect]
     Active Substance: HALOPERIDOL
     Indication: Schizophrenia
     Dosage: 2.5 MILLIGRAM, QD (2.5 MG, PER DAY)
     Route: 030
  13. HALOPERIDOL [Suspect]
     Active Substance: HALOPERIDOL
     Dosage: 2.5 MILLIGRAM, QD (2.5 MG, PER DAY)
     Route: 065
  14. HALOPERIDOL [Concomitant]
     Active Substance: HALOPERIDOL
     Indication: Schizophrenia
     Dosage: 2.5 MILLIGRAM, QD
     Route: 030

REACTIONS (20)
  - Pulmonary embolism [Fatal]
  - Cardiac arrest [Fatal]
  - Pulmonary infarction [Fatal]
  - Pulseless electrical activity [Fatal]
  - Pulmonary oedema [Fatal]
  - Haemorrhagic infarction [Fatal]
  - Drug ineffective [Unknown]
  - Hallucination, auditory [Unknown]
  - Treatment noncompliance [Unknown]
  - Intentional dose omission [Unknown]
  - Schizophrenia [Unknown]
  - Burning sensation [Unknown]
  - Eating disorder [Unknown]
  - Malaise [Unknown]
  - Abdominal pain [Unknown]
  - Nausea [Unknown]
  - Asthenia [Unknown]
  - Negativism [Unknown]
  - Vomiting [Unknown]
  - Chest pain [Unknown]
